FAERS Safety Report 12461771 (Version 1)
Quarter: 2016Q2

REPORT INFORMATION
  Report Type: Spontaneous
  Country: US (occurrence: US)
  Receive Date: 20160613
  Receipt Date: 20160613
  Transmission Date: 20160815
  Serious: No
  Sender: FDA-Public Use
  Company Number: US-BAYER-2016-112018

PATIENT
  Age: 88 Year
  Sex: Female
  Weight: 68.27 kg

DRUGS (1)
  1. ALEVE [Suspect]
     Active Substance: NAPROXEN SODIUM
     Indication: ANALGESIC THERAPY
     Dosage: 1 DF, UNK; CONSUMER BEGAN USING THE PRODUCT ABOUT A YEAR AGO, BUT DID NOT USE IT ALL THE TIME SUMMER
     Route: 048

REACTIONS (3)
  - Pain in extremity [Not Recovered/Not Resolved]
  - Product use issue [None]
  - Product closure removal difficult [Not Recovered/Not Resolved]
